FAERS Safety Report 23762652 (Version 1)
Quarter: 2024Q2

REPORT INFORMATION
  Report Type: Spontaneous
  Country: US (occurrence: US)
  Receive Date: 20240419
  Receipt Date: 20240419
  Transmission Date: 20240716
  Serious: Yes (Other)
  Sender: FDA-Public Use
  Company Number: US-AMGEN-USASP2024075379

PATIENT
  Age: 64 Year
  Sex: Male

DRUGS (4)
  1. RITUXIMAB [Suspect]
     Active Substance: RITUXIMAB
     Indication: Diffuse large B-cell lymphoma
     Dosage: UNK, 4 CYCLES
     Route: 065
  2. DORZOLAMIDE\TIMOLOL [Concomitant]
     Active Substance: DORZOLAMIDE\TIMOLOL
     Indication: Open angle glaucoma
     Dosage: UNK, EYE DROPS IN BOTH EYES
     Route: 065
  3. LATANOPROST [Concomitant]
     Active Substance: LATANOPROST
     Indication: Open angle glaucoma
     Dosage: UNK, EYE DROPS IN BOTH EYES
     Route: 065
  4. CYCLOPHOSPHAMIDE\DOXORUBICIN\PREDNISONE\VINCRISTINE [Concomitant]
     Active Substance: CYCLOPHOSPHAMIDE\DOXORUBICIN\PREDNISONE\VINCRISTINE
     Indication: Diffuse large B-cell lymphoma
     Dosage: UNK, 4 CYCLES
     Route: 065

REACTIONS (7)
  - Ocular lymphoma [Unknown]
  - Pneumonitis chemical [Unknown]
  - Cardiomyopathy [Unknown]
  - VIth nerve paralysis [Unknown]
  - Diffuse large B-cell lymphoma recurrent [Unknown]
  - CSF protein increased [Unknown]
  - Pleural effusion [Unknown]
